FAERS Safety Report 10442099 (Version 1)
Quarter: 2014Q3

REPORT INFORMATION
  Report Type: Spontaneous
  Country: US (occurrence: US)
  Receive Date: 20140909
  Receipt Date: 20140909
  Transmission Date: 20150326
  Serious: No
  Sender: FDA-Public Use
  Company Number: US-ASTRAZENECA-2014SE64818

PATIENT
  Age: 82 Year
  Sex: Female
  Weight: 73 kg

DRUGS (11)
  1. SULFAMETH-PRIMETHOPRIM [Concomitant]
     Indication: ANTIBIOTIC THERAPY
     Dosage: 800/160 BID
     Route: 048
  2. ERYTHROSULFATE [Concomitant]
  3. MUCINEX QUALIFENESEN [Concomitant]
     Indication: PULMONARY CONGESTION
     Route: 048
  4. FLONET HFA [Concomitant]
     Indication: PULMONARY CONGESTION
  5. PULMICORT FLEXHALER [Suspect]
     Active Substance: BUDESONIDE
     Indication: ASTHMA
     Dosage: 2 PUFFS BID
     Route: 055
     Dates: start: 201408
  6. PULMICORT FLEXHALER [Suspect]
     Active Substance: BUDESONIDE
     Indication: PULMONARY CONGESTION
     Dosage: 2 PUFFS BID
     Route: 055
     Dates: start: 201408
  7. COTISONE [Concomitant]
  8. SULFAMETH-PRIMETHOPRIM [Concomitant]
     Indication: PULMONARY CONGESTION
     Dosage: 800/160 BID
     Route: 048
  9. FLONET HFA [Concomitant]
     Indication: ASTHMA
  10. ANTIBIOTIC(UNSPECIFED) [Concomitant]
     Indication: PULMONARY CONGESTION
  11. METROPIN BROMIDE [Concomitant]

REACTIONS (3)
  - Speech disorder [Unknown]
  - Pulmonary congestion [Not Recovered/Not Resolved]
  - Drug ineffective [Not Recovered/Not Resolved]

NARRATIVE: CASE EVENT DATE: 201408
